FAERS Safety Report 15222079 (Version 1)
Quarter: 2018Q3

REPORT INFORMATION
  Report Type: Spontaneous
  Country: US (occurrence: US)
  Receive Date: 20180705
  Receipt Date: 20180705
  Transmission Date: 20181010
  Serious: Yes (Other)
  Sender: FDA-Public Use
  Company Number: None

PATIENT
  Age: 60 Year
  Sex: Female
  Weight: 147 kg

DRUGS (3)
  1. DIPHENHYDRAMINE. [Concomitant]
     Active Substance: DIPHENHYDRAMINE
     Dates: start: 20180604, end: 20180604
  2. RITUXAN [Suspect]
     Active Substance: RITUXIMAB
     Indication: RHEUMATOID ARTHRITIS
     Route: 041
     Dates: start: 20180604, end: 20180604
  3. HYDROCORTISONE SUCCINATE [Concomitant]
     Dates: start: 20180604, end: 20180604

REACTIONS (4)
  - Ear pruritus [None]
  - Pruritus [None]
  - Throat irritation [None]
  - Drug effect incomplete [None]

NARRATIVE: CASE EVENT DATE: 20180604
